FAERS Safety Report 21812727 (Version 3)
Quarter: 2024Q1

REPORT INFORMATION
  Report Type: Spontaneous
  Country: IT (occurrence: IT)
  Receive Date: 20230103
  Receipt Date: 20240306
  Transmission Date: 20240410
  Serious: Yes (Hospitalization)
  Sender: FDA-Public Use
  Company Number: IT-ROCHE-3246339

PATIENT
  Age: 45 Year
  Sex: Female
  Weight: 65 kg

DRUGS (34)
  1. TRASTUZUMAB [Suspect]
     Active Substance: TRASTUZUMAB
     Indication: HER2 positive breast cancer
     Dosage: 8 MG/KG, EVERY 3 WEEKS FREQUENCY : EVERY THREE WEEK.MOST RECENT DOSE PRIOR TO THE EVENT: 21/NOV/2022
     Route: 041
     Dates: start: 20170418, end: 20170418
  2. TRASTUZUMAB [Suspect]
     Active Substance: TRASTUZUMAB
     Dosage: 8 MG/KG, EVERY 3 WEEKS,MOST RECENT DOSE PRIOR TO THE EVENT
     Route: 041
     Dates: start: 20221121
  3. TRASTUZUMAB [Suspect]
     Active Substance: TRASTUZUMAB
     Dosage: 6 MG/KG, EVERY 3 WEEKS
     Route: 042
     Dates: start: 20170509, end: 20200803
  4. TRASTUZUMAB [Suspect]
     Active Substance: TRASTUZUMAB
     Dosage: 350 MG, EVERY 3 WEEKS
     Route: 042
     Dates: start: 20211020, end: 20220316
  5. TRASTUZUMAB [Suspect]
     Active Substance: TRASTUZUMAB
     Dosage: 198 MG
     Route: 042
     Dates: start: 20220316, end: 20221121
  6. TRASTUZUMAB [Suspect]
     Active Substance: TRASTUZUMAB
     Dosage: 490 MG/M2, EVERY 3 WEEKS
     Route: 042
     Dates: start: 20221121, end: 20230109
  7. TRASTUZUMAB [Suspect]
     Active Substance: TRASTUZUMAB
     Dosage: 600 MG, EVERY 3 WEEKS
     Route: 058
     Dates: start: 20230109
  8. DOCETAXEL [Suspect]
     Active Substance: DOCETAXEL\DOCETAXEL ANHYDROUS
     Indication: HER2 positive breast cancer
     Dosage: 60 MG/M2, EVERY 3 WEEKS FREQUNCY: EVERY THREE WEEK,INTRAVENOUS (NOT OTHERWISE SPECIFIED), MOST RECEN
     Route: 042
     Dates: start: 20170418, end: 20170418
  9. DOCETAXEL [Suspect]
     Active Substance: DOCETAXEL\DOCETAXEL ANHYDROUS
     Dosage: 75 MG/M2, EVERY 3 WEEKS
     Route: 042
     Dates: start: 20170509, end: 20170928
  10. EXEMESTANE [Suspect]
     Active Substance: EXEMESTANE
     Indication: HER2 positive breast cancer
     Dosage: 25 MG, 1X/DAY
     Route: 048
     Dates: start: 20171019, end: 20200803
  11. EXEMESTANE [Suspect]
     Active Substance: EXEMESTANE
     Dosage: 25 MG, 1X/DAY
     Route: 048
     Dates: start: 20200803
  12. ADO-TRASTUZUMAB EMTANSINE [Suspect]
     Active Substance: ADO-TRASTUZUMAB EMTANSINE
     Indication: HER2 positive breast cancer
     Dosage: 3.6 MG/KG, EVERY 3 WEEKS; ,INTRAVENOUS (NOT OTHERWISE SPECIFIED) ,FRQUENCY:EVERY THREE WEEK,MOST REC
     Route: 042
     Dates: start: 20200803, end: 20210927
  13. CAPECITABINE [Suspect]
     Active Substance: CAPECITABINE
     Indication: HER2 positive breast cancer
     Dosage: 150 MG, 1X/DAY (FREQUENCY 4 TIMES)
     Route: 048
     Dates: start: 20221121, end: 20221212
  14. CAPECITABINE [Suspect]
     Active Substance: CAPECITABINE
     Dosage: 500 MG, 1X/DAY
     Route: 048
     Dates: start: 20221121, end: 20221212
  15. TUCATINIB [Suspect]
     Active Substance: TUCATINIB
     Indication: HER2 positive breast cancer
     Dosage: 150 MG, 1X/DAY (FREQUNCY:4 TIMES)
     Route: 048
     Dates: start: 20221121, end: 20221212
  16. PERTUZUMAB [Suspect]
     Active Substance: PERTUZUMAB
     Indication: HER2 positive breast cancer
     Dosage: 840 MG, EVERY 3 WEEKS; MOST RECENT DOSE PRIOR TO THE EVENT: 09MAY2017
     Route: 042
     Dates: start: 20170418, end: 20170418
  17. PERTUZUMAB [Suspect]
     Active Substance: PERTUZUMAB
     Dosage: 420 MG, EVERY 3 WEEKS
     Route: 042
     Dates: start: 20170509, end: 20200803
  18. LEUPROLIDE ACETATE [Suspect]
     Active Substance: ISOPROPYL ALCOHOL\LEUPROLIDE ACETATE
     Route: 058
     Dates: start: 20171019
  19. OXYCODONE [Concomitant]
     Active Substance: OXYCODONE\OXYCODONE HYDROCHLORIDE
     Dosage: 2.5 MG
     Route: 048
     Dates: start: 20221109
  20. ALDACTONE [Concomitant]
     Active Substance: SPIRONOLACTONE
     Dosage: 25 MG  0.3 WEEK
     Route: 048
     Dates: start: 20221012
  21. ENANTONE LP [Concomitant]
     Active Substance: LEUPROLIDE ACETATE
     Dosage: 3.75 MG, MONTHLY
     Route: 058
     Dates: start: 20171018
  22. ARIXTRA [Concomitant]
     Active Substance: FONDAPARINUX SODIUM
     Indication: Deep vein thrombosis
     Dosage: 7.5 MG
     Route: 048
     Dates: start: 20221111
  23. CYANOCOBALAMIN\PYRIDOXINE\THIAMINE [Concomitant]
     Active Substance: CYANOCOBALAMIN\PYRIDOXINE\THIAMINE
     Dosage: UNK, 1X/DAY
     Route: 048
     Dates: start: 20220622
  24. FUROSEMIDE [Concomitant]
     Active Substance: FUROSEMIDE
     Dosage: UNK UNK, 1X/DAY
     Dates: start: 20221012
  25. FUROSEMIDE [Concomitant]
     Active Substance: FUROSEMIDE
     Dosage: 25 MG, 1X/DAY
     Route: 048
     Dates: start: 20170414, end: 20170418
  26. FUROSEMIDE [Concomitant]
     Active Substance: FUROSEMIDE
     Dosage: 12.5 UNK
     Route: 048
     Dates: start: 20170525, end: 20170716
  27. LANSOPRAZOLE [Concomitant]
     Active Substance: LANSOPRAZOLE
     Dosage: 15 MG, 1X/DAY
     Route: 048
     Dates: start: 20201005
  28. MOVICOL [Concomitant]
     Active Substance: POLYETHYLENE GLYCOL 3350\POTASSIUM CHLORIDE\SODIUM BICARBONATE\SODIUM CHLORIDE
     Dosage: UNK
     Dates: start: 20220413
  29. CHLORPHENIRAMINE [Concomitant]
     Active Substance: CHLORPHENIRAMINE
     Dosage: UNK
     Dates: start: 20170718
  30. TIOBEC [THIOCTIC ACID] [Concomitant]
     Dosage: UNK, 1X/DAY
     Route: 048
     Dates: start: 20220622
  31. LEVETIRACETAM [Concomitant]
     Active Substance: LEVETIRACETAM
     Dosage: 500 MG  0.5 DAY
     Route: 048
     Dates: start: 20210614
  32. FOLIC ACID [Concomitant]
     Active Substance: FOLIC ACID
     Dosage: UNK
     Route: 048
     Dates: start: 20220622
  33. DEXAMETHASONE SODIUM PHOSPHATE [Concomitant]
     Active Substance: DEXAMETHASONE PHOSPHATE\DEXAMETHASONE SODIUM PHOSPHATE
     Dosage: 4 MG 0.3 WEEK
     Route: 048
     Dates: start: 20220727
  34. DEXAMETHASONE SODIUM PHOSPHATE [Concomitant]
     Active Substance: DEXAMETHASONE PHOSPHATE\DEXAMETHASONE SODIUM PHOSPHATE
     Dosage: UNK
     Dates: start: 20220921

REACTIONS (2)
  - Neurological decompensation [Not Recovered/Not Resolved]
  - Off label use [Unknown]

NARRATIVE: CASE EVENT DATE: 20221212
